FAERS Safety Report 5419758-8 (Version None)
Quarter: 2007Q3

REPORT INFORMATION
  Report Type: 
  Country: None (occurrence: None)
  Receive Date: 20070820
  Receipt Date: 20070328
  Transmission Date: 20080115
  Serious: Yes (Other)
  Sender: FDA-Public Use
  Company Number: JP-TYCO HEALTHCARE/MALLINCKRODT-T200700894

PATIENT

DRUGS (1)
  1. SODIUM IODIDE I 131 [Suspect]
     Indication: ISOTOPE THERAPY TO THYROID
     Dosage: 3.7 GBQ, SINGLE

REACTIONS (6)
  - CYANOSIS [None]
  - DYSPNOEA [None]
  - LARYNGEAL OEDEMA [None]
  - MUSCULOSKELETAL DISCOMFORT [None]
  - OBSTRUCTIVE AIRWAYS DISORDER [None]
  - OXYGEN SATURATION DECREASED [None]
